FAERS Safety Report 9040324 (Version 1)
Quarter: 2013Q1

REPORT INFORMATION
  Report Type: Report from Study
  Country: US (occurrence: US)
  Receive Date: 20130129
  Receipt Date: 20130129
  Transmission Date: 20140127
  Serious: No
  Sender: FDA-Public Use
  Company Number: US-ABBOTT-12P-163-0893513-00

PATIENT
  Sex: Female
  Weight: 99.88 kg

DRUGS (6)
  1. HUMIRA 40 MG/ 0.8 ML PRE-FILLED SYRINGE [Suspect]
     Indication: RHEUMATOID ARTHRITIS
     Dates: start: 2006
  2. SAVELLA [Concomitant]
     Indication: FIBROMYALGIA
  3. VICODIN [Concomitant]
     Indication: PAIN
  4. FENTANYL [Concomitant]
     Indication: PAIN
  5. AMBIEN CR [Concomitant]
     Indication: INSOMNIA
  6. UNKNOWN MEDICATION [Concomitant]
     Indication: MUSCLE RELAXANT THERAPY

REACTIONS (3)
  - Blister [Not Recovered/Not Resolved]
  - Blister [Not Recovered/Not Resolved]
  - Blister [Unknown]
